FAERS Safety Report 20612003 (Version 7)
Quarter: 2022Q3

REPORT INFORMATION
  Report Type: Spontaneous
  Country: PT (occurrence: PT)
  Receive Date: 20220318
  Receipt Date: 20220926
  Transmission Date: 20221026
  Serious: Yes (Death, Other)
  Sender: FDA-Public Use
  Company Number: None

PATIENT

DRUGS (2)
  1. ADALIMUMAB [Suspect]
     Active Substance: ADALIMUMAB
     Indication: Product used for unknown indication
     Dosage: UNKNOWN
     Route: 065
  2. ETANERCEPT [Suspect]
     Active Substance: ETANERCEPT
     Indication: Product used for unknown indication
     Dosage: UNKNOWN
     Route: 065

REACTIONS (45)
  - Sepsis [Fatal]
  - Headache [Fatal]
  - Altered state of consciousness [Fatal]
  - Cardio-respiratory arrest [Fatal]
  - Nausea [Fatal]
  - Coma [Fatal]
  - Haematemesis [Fatal]
  - Pruritus [Fatal]
  - Diarrhoea [Fatal]
  - Pyrexia [Fatal]
  - Arthralgia [Fatal]
  - Diplopia [Fatal]
  - Asthenia [Fatal]
  - Blood pressure increased [Fatal]
  - Blindness [Fatal]
  - Syncope [Fatal]
  - Insomnia [Fatal]
  - Urinary tract disorder [Fatal]
  - Chills [Fatal]
  - Fatigue [Fatal]
  - Myalgia [Fatal]
  - Eye pain [Fatal]
  - Cough [Fatal]
  - Generalised oedema [Fatal]
  - Abdominal pain upper [Fatal]
  - Photophobia [Fatal]
  - Tinnitus [Fatal]
  - Vision blurred [Fatal]
  - Dizziness [Fatal]
  - Vomiting [Fatal]
  - Abdominal pain [Fatal]
  - Haematuria [Fatal]
  - Amaurosis fugax [Fatal]
  - Dyspnoea [Fatal]
  - Ascites [Fatal]
  - Ocular discomfort [Fatal]
  - Decreased appetite [Fatal]
  - Head discomfort [Fatal]
  - Presyncope [Fatal]
  - Fall [Fatal]
  - Tachycardia [Fatal]
  - Malaise [Fatal]
  - Somnolence [Fatal]
  - Haemorrhagic stroke [Fatal]
  - Drug interaction [Fatal]
